FAERS Safety Report 4269641-9 (Version None)
Quarter: 2004Q1

REPORT INFORMATION
  Report Type: 
  Country: None (occurrence: None)
  Receive Date: 20040109
  Receipt Date: 20031229
  Transmission Date: 20041129
  Serious: Yes (Hospitalization, Other)
  Sender: FDA-Public Use
  Company Number: 2003122270

PATIENT
  Age: 74 Year
  Sex: Female
  Weight: 102.0593 kg

DRUGS (17)
  1. LIPITOR [Suspect]
     Indication: BLOOD CHOLESTEROL INCREASED
     Dosage: ORAL
     Route: 048
  2. TIKOSYN [Suspect]
     Indication: ATRIAL FIBRILLATION
     Dosage: 0.75 MG (BID), ORAL
     Route: 048
     Dates: start: 20030301
  3. EZETIMIBE (EZETIMIBE) [Suspect]
     Indication: BLOOD CHOLESTEROL INCREASED
     Dosage: 10 MG (DAILY)
     Dates: start: 20031126, end: 20031203
  4. BISOPROLOL FUMARATE [Concomitant]
  5. CLOPIDOGREL BISULFATE [Concomitant]
  6. ACTEYLSALICYLIC ACID (ACTEYLSALICYLIC ACID) [Concomitant]
  7. FUROSEMIDE [Concomitant]
  8. GLYBURIDE [Concomitant]
  9. POTASSIUM CHLORIDE [Concomitant]
  10. CELECOXIB (CELECOXIB) [Concomitant]
  11. ASCORBIC ACID [Concomitant]
  12. TOCOPHEROL CONCENTRATE CAP [Concomitant]
  13. MULTIVITAMINS (ERGOCALCIFEROL, ASCORBIC ACID, FOLIC ACID, THIAMINE HYD [Concomitant]
  14. LECITHIN (LECITHIN) [Concomitant]
  15. CALCIUM (CALCIUM) [Concomitant]
  16. ALL OTHER THERAPEUTIC PRODUCTS [Concomitant]
  17. PSYLLIUM HYDRPHILIC MUCLILLOID (PSYLLIUM HYDROPHILIC MUCLILLOID) [Concomitant]

REACTIONS (15)
  - ACCIDENTAL EXPOSURE [None]
  - ASTHENIA [None]
  - ATRIAL FIBRILLATION [None]
  - BLOOD POTASSIUM DECREASED [None]
  - CHEST PAIN [None]
  - DIABETES MELLITUS [None]
  - DYSPNOEA [None]
  - HIP ARTHROPLASTY [None]
  - LIMB INJURY [None]
  - MEDICATION ERROR [None]
  - MUSCULAR WEAKNESS [None]
  - MYOCARDIAL INFARCTION [None]
  - PALPITATIONS [None]
  - PRURITUS [None]
  - SKIN LACERATION [None]
